FAERS Safety Report 16705968 (Version 2)
Quarter: 2019Q3

REPORT INFORMATION
  Report Type: Spontaneous
  Country: ES (occurrence: ES)
  Receive Date: 20190815
  Receipt Date: 20190820
  Transmission Date: 20191004
  Serious: Yes (Death)
  Sender: FDA-Public Use
  Company Number: ES-CHIESI USA, INC.-ES-2019CHI000306

PATIENT

DRUGS (1)
  1. CLEVIDIPINE [Suspect]
     Active Substance: CLEVIDIPINE
     Indication: HYPERTENSION
     Dosage: UNK
     Route: 042

REACTIONS (3)
  - Infection [Fatal]
  - Respiratory disorder [Fatal]
  - Angiopathy [Fatal]
